FAERS Safety Report 8047640-9 (Version None)
Quarter: 2012Q1

REPORT INFORMATION
  Report Type: 
  Country: None (occurrence: None)
  Receive Date: 20120116
  Receipt Date: 20120110
  Transmission Date: 20120608
  Serious: Yes (Death, Hospitalization)
  Sender: FDA-Public Use
  Company Number: JP-GLAXOSMITHKLINE-B0775027A

PATIENT
  Age: 70 Year
  Sex: Male

DRUGS (2)
  1. FLUTICASONE PROPIONATE/SALMETEROL [Suspect]
     Indication: CHRONIC OBSTRUCTIVE PULMONARY DISEASE
     Route: 055
     Dates: start: 20050101
  2. TIOPRONIN [Concomitant]
     Indication: CHRONIC OBSTRUCTIVE PULMONARY DISEASE
     Route: 055
     Dates: start: 20050101

REACTIONS (13)
  - RESPIRATORY FAILURE [None]
  - ATRIOVENTRICULAR BLOCK [None]
  - INFECTION [None]
  - BACTERIAL INFECTION [None]
  - PYREXIA [None]
  - PNEUMONIA INFLUENZAL [None]
  - PNEUMONIA ASPIRATION [None]
  - LUNG DISORDER [None]
  - FUNGAL INFECTION [None]
  - STAPHYLOCOCCAL INFECTION [None]
  - DYSPNOEA [None]
  - PRODUCTIVE COUGH [None]
  - PROCALCITONIN INCREASED [None]
